FAERS Safety Report 6234938-X (Version None)
Quarter: 2009Q2

REPORT INFORMATION
  Report Type: 
  Country: None (occurrence: None)
  Receive Date: 20090616
  Receipt Date: 20090608
  Transmission Date: 20091009
  Serious: Yes (Other)
  Sender: FDA-Public Use
  Company Number: ADR3232009 (DE-BFARM-09023351)

PATIENT
  Age: 65 Year
  Sex: Male

DRUGS (7)
  1. CABERGOLINE                (MFR. UNKNOWN) [Suspect]
     Indication: PARKINSON'S DISEASE
     Dosage: 6 MG, ORAL
     Route: 048
     Dates: start: 20040101
  2. AMANTA [Concomitant]
  3. MADOPAR DEPOT [Concomitant]
  4. COMTESS [Concomitant]
  5. LISI-LICH COMP20MG/12.5HYDROCHLOROTHIAZIDE [Concomitant]
  6. LISINOPRIL DEHYDRATE) [Concomitant]
  7. VESIKUR  5MG FILM TAB [Concomitant]

REACTIONS (1)
  - AORTIC VALVE INCOMPETENCE [None]
